FAERS Safety Report 7419020-8 (Version None)
Quarter: 2011Q2

REPORT INFORMATION
  Report Type: 
  Country: None (occurrence: None)
  Receive Date: 20110415
  Receipt Date: 20110408
  Transmission Date: 20111010
  Serious: Yes (Hospitalization)
  Sender: FDA-Public Use
  Company Number: US-US-EMD SERONO, INC.-7053022

PATIENT
  Sex: Female

DRUGS (1)
  1. REBIF [Suspect]
     Indication: PRODUCT USED FOR UNKNOWN INDICATION
     Route: 058
     Dates: start: 20070808

REACTIONS (5)
  - MUSCULAR WEAKNESS [None]
  - APPENDICECTOMY [None]
  - CENTRAL NERVOUS SYSTEM LESION [None]
  - DEPRESSION [None]
  - FATIGUE [None]
